FAERS Safety Report 8534859-3 (Version None)
Quarter: 2012Q3

REPORT INFORMATION
  Report Type: 
  Country: None (occurrence: None)
  Receive Date: 20120724
  Receipt Date: 20120710
  Transmission Date: 20120928
  Serious: Yes (Other)
  Sender: FDA-Public Use
  Company Number: US-CELGENEUS-163-21880-12071171

PATIENT
  Sex: Female

DRUGS (8)
  1. REVLIMID [Suspect]
     Dosage: 5 MILLIGRAM
     Route: 048
     Dates: start: 20111109
  2. VITAMIN D [Concomitant]
     Route: 065
  3. COUMADIN [Concomitant]
     Route: 065
  4. GLUCOSAMINE HCL [Concomitant]
     Route: 065
  5. PROBIOTIC [Concomitant]
     Route: 065
  6. METAMUCIL-2 [Concomitant]
     Route: 065
  7. CALCIUM 500+D [Concomitant]
     Route: 065
  8. SIMVASTATIN [Concomitant]
     Route: 065

REACTIONS (1)
  - THYROID DISORDER [None]
